FAERS Safety Report 11442077 (Version 1)
Quarter: 2015Q3

REPORT INFORMATION
  Report Type: Spontaneous
  Country: FR (occurrence: FR)
  Receive Date: 20150901
  Receipt Date: 20150901
  Transmission Date: 20151125
  Serious: Yes (Life-Threatening)
  Sender: FDA-Public Use
  Company Number: FR-SA-2015SA130654

PATIENT
  Age: 82 Year
  Sex: Male

DRUGS (8)
  1. LOSARTAN. [Concomitant]
     Active Substance: LOSARTAN
  2. PLAVIX [Suspect]
     Active Substance: CLOPIDOGREL BISULFATE
     Route: 048
     Dates: end: 20150702
  3. COUMADIN [Interacting]
     Active Substance: WARFARIN SODIUM
     Route: 048
     Dates: end: 20150702
  4. BISOCE [Concomitant]
     Active Substance: BISOPROLOL
     Dosage: BISOCE 0.25 MG X 1 TAB/DAY
  5. TAHOR [Concomitant]
     Active Substance: ATORVASTATIN CALCIUM
     Dosage: TAHOR 40 X 1 TAB/DAY
  6. KARDEGIC [Interacting]
     Active Substance: ASPIRIN LYSINE
     Dosage: POWDER FOR ORAL SOLUTION IN DOSE SACHET
     Route: 048
     Dates: end: 20150702
  7. AMLOR [Concomitant]
     Active Substance: AMLODIPINE BESYLATE
     Dosage: AMLOR 10 X 1 TAB/DAY
  8. COUMADIN [Interacting]
     Active Substance: WARFARIN SODIUM
     Route: 065
     Dates: start: 201507

REACTIONS (4)
  - Anaemia [Recovering/Resolving]
  - International normalised ratio increased [Recovered/Resolved]
  - Drug interaction [Unknown]
  - Melaena [Recovered/Resolved]

NARRATIVE: CASE EVENT DATE: 20150702
